FAERS Safety Report 8858738 (Version 1)
Quarter: 2012Q4

REPORT INFORMATION
  Report Type: 
  Country: IN (occurrence: IN)
  Receive Date: 20121024
  Receipt Date: 20121024
  Transmission Date: 20130627
  Serious: Yes (Hospitalization)
  Sender: FDA-Public Use
  Company Number: IN-MERCK-1210IND007556

PATIENT
  Age: 70 Year
  Sex: Female

DRUGS (2)
  1. VIRAFERONPEG [Suspect]
     Dosage: 50 Microgram, qw
     Dates: end: 2012
  2. REBETOL [Suspect]

REACTIONS (2)
  - Asthenia [Unknown]
  - Decreased appetite [Unknown]
